FAERS Safety Report 4396502-7 (Version None)
Quarter: 2004Q3

REPORT INFORMATION
  Report Type: 
  Country: None (occurrence: None)
  Receive Date: 20040709
  Receipt Date: 20040625
  Transmission Date: 20050211
  Serious: Yes (Disabling)
  Sender: FDA-Public Use
  Company Number: FR-JNJFOC-20040607404

PATIENT
  Age: 70 Year
  Sex: Male
  Weight: 66 kg

DRUGS (10)
  1. RISPERDAL [Suspect]
     Indication: PSYCHOTIC DISORDER
     Dosage: 2 MG, 2 IN 1 DAY, ORAL
     Route: 048
     Dates: start: 19900101
  2. BACTRIM [Suspect]
     Dosage: 400 MG, 1 IN 1 DAY, ORAL
     Route: 048
     Dates: start: 20040301
  3. MEPRONIZINE (MEPRONIZINE) CAPSULES [Suspect]
     Dosage: 2 DOSE(S), 1 IN 1 DAY, ORAL
     Route: 048
     Dates: start: 19980101
  4. CORDARONE [Suspect]
     Dosage: 200 MG, 1 IN 1 DAY, ORAL
     Route: 048
     Dates: start: 19980101
  5. THALOMID [Suspect]
     Indication: MULTIPLE MYELOMA
     Dosage: 200 MG, 1 IN 1 DAY, ORAL
     Route: 048
     Dates: start: 20040225
  6. RAMIPRIL [Concomitant]
  7. SPORANOX [Concomitant]
  8. FLECAINIDE ACETATE [Concomitant]
  9. PROZAC [Concomitant]
  10. MORPHINE SULFATE [Concomitant]

REACTIONS (5)
  - BRACHIAL PLEXUS LESION [None]
  - DRUG INTERACTION [None]
  - NERVE ROOT LESION [None]
  - PERIPHERAL MOTOR NEUROPATHY [None]
  - PERIPHERAL SENSORY NEUROPATHY [None]
